FAERS Safety Report 6531845-X (Version None)
Quarter: 2010Q1

REPORT INFORMATION
  Report Type: 
  Country: None (occurrence: None)
  Receive Date: 20100107
  Receipt Date: 20100107
  Transmission Date: 20100710
  Serious: Yes (Life-Threatening, Other)
  Sender: FDA-Public Use
  Company Number: None

PATIENT
  Age: 62 Year
  Sex: Female
  Weight: 46.2669 kg

DRUGS (7)
  1. SULFASALAZINE [Suspect]
     Indication: KNEE ARTHROPLASTY
     Dosage: 1 TABLET TWICE A DAY PO
     Route: 048
     Dates: start: 20091214, end: 20091223
  2. PREDNISONE [Concomitant]
  3. HYDROXINE HCL [Concomitant]
  4. SERTRALINE HCL [Concomitant]
  5. ACETAMINOPHEN W/ CODEINE NO. 3 [Concomitant]
  6. TRIAMCINOLONE [Concomitant]
  7. PRAMOXINE [Concomitant]

REACTIONS (16)
  - BLISTER [None]
  - BURNING SENSATION [None]
  - CHILLS [None]
  - DECREASED APPETITE [None]
  - DEPRESSION [None]
  - ERYTHEMA [None]
  - GENERALISED OEDEMA [None]
  - HEADACHE [None]
  - INSOMNIA [None]
  - MOVEMENT DISORDER [None]
  - OROPHARYNGEAL PAIN [None]
  - PAIN [None]
  - RASH [None]
  - STOMATITIS [None]
  - SWELLING FACE [None]
  - WEIGHT DECREASED [None]
